FAERS Safety Report 5057821-4 (Version None)
Quarter: 2006Q3

REPORT INFORMATION
  Report Type: 
  Country: None (occurrence: None)
  Receive Date: 20060721
  Receipt Date: 20060303
  Transmission Date: 20061208
  Serious: No
  Sender: FDA-Public Use
  Company Number: US-GLAXOSMITHKLINE-A0596006A

PATIENT
  Age: 72 Year
  Sex: Male
  Weight: 97.3 kg

DRUGS (8)
  1. AVANDIA [Suspect]
     Dosage: 4MG TWICE PER DAY
     Route: 048
     Dates: start: 20060201, end: 20060303
  2. GLUCOPHAGE [Concomitant]
     Dosage: 1000MG TWICE PER DAY
  3. ATENOLOL [Concomitant]
  4. HYDROCHLOROTHIAZIDE [Concomitant]
  5. LIPITOR [Concomitant]
  6. LOTREL [Concomitant]
  7. PLAVIX [Concomitant]
  8. PROTONIX [Concomitant]

REACTIONS (3)
  - ABASIA [None]
  - DIZZINESS [None]
  - VERTIGO [None]
